FAERS Safety Report 23310323 (Version 7)
Quarter: 2024Q2

REPORT INFORMATION
  Report Type: Spontaneous
  Country: US (occurrence: US)
  Receive Date: 20231218
  Receipt Date: 20240520
  Transmission Date: 20240716
  Serious: No
  Sender: FDA-Public Use
  Company Number: US-PFIZER INC-PV202300198827

PATIENT
  Age: 84 Year
  Sex: Female
  Weight: 58.51 kg

DRUGS (1)
  1. PREMARIN [Suspect]
     Active Substance: ESTROGENS, CONJUGATED
     Indication: Atrophic vulvovaginitis
     Dosage: 1 G, 2X/WEEK
     Route: 067
     Dates: start: 20210608, end: 20221115

REACTIONS (2)
  - Drug ineffective [Unknown]
  - Vulvovaginal burning sensation [Unknown]
